FAERS Safety Report 6332462-7 (Version None)
Quarter: 2009Q3

REPORT INFORMATION
  Report Type: 
  Country: None (occurrence: None)
  Receive Date: 20090828
  Receipt Date: 20090821
  Transmission Date: 20100115
  Serious: Yes (Other)
  Sender: FDA-Public Use
  Company Number: JP-AVENTIS-200912325JP

PATIENT
  Age: 63 Year
  Sex: Male

DRUGS (3)
  1. LASIX [Suspect]
     Indication: PLEURAL EFFUSION
     Route: 048
     Dates: end: 20090301
  2. LASIX [Suspect]
     Route: 048
     Dates: start: 20090416, end: 20090819
  3. UNKNOWN DRUG [Concomitant]

REACTIONS (2)
  - APLASIA PURE RED CELL [None]
  - HAEMOGLOBIN DECREASED [None]
